FAERS Safety Report 22146995 (Version 5)
Quarter: 2023Q2

REPORT INFORMATION
  Report Type: Other
  Country: GB (occurrence: None)
  Receive Date: 20230328
  Receipt Date: 20230531
  Transmission Date: 20230721
  Serious: Yes (Hospitalization)
  Sender: FDA-Public Use
  Company Number: GB-ROCHE-3291330

PATIENT
  Age: 25 Year
  Sex: Female

DRUGS (15)
  1. PERTUZUMAB [Suspect]
     Active Substance: PERTUZUMAB
     Indication: Breast cancer
     Route: 042
     Dates: start: 20180213, end: 20180213
  2. PERTUZUMAB [Suspect]
     Active Substance: PERTUZUMAB
     Route: 042
     Dates: start: 20180306
  3. TRASTUZUMAB [Suspect]
     Active Substance: TRASTUZUMAB
     Indication: Breast cancer
     Route: 042
     Dates: start: 20180213, end: 20180213
  4. TRASTUZUMAB [Suspect]
     Active Substance: TRASTUZUMAB
     Route: 042
     Dates: start: 20180306, end: 20180508
  5. TRASTUZUMAB [Suspect]
     Active Substance: TRASTUZUMAB
     Route: 042
     Dates: start: 20180529
  6. DOCETAXEL [Suspect]
     Active Substance: DOCETAXEL
     Indication: Breast cancer
     Route: 042
     Dates: start: 20180214, end: 20180529
  7. DOCUSATE [Concomitant]
     Active Substance: DOCUSATE
     Route: 048
     Dates: start: 20180323, end: 20180505
  8. DOXYCYCLINE [Concomitant]
     Active Substance: DOXYCYCLINE
     Route: 048
     Dates: start: 20180219
  9. METOCLOPRAMIDE [Concomitant]
     Active Substance: METOCLOPRAMIDE
     Route: 048
     Dates: start: 20180213, end: 20180529
  10. DEXAMETHASONE [Concomitant]
     Active Substance: DEXAMETHASONE
     Dosage: BD FOR 3 DAYS ON DAY 21 OF CYCLE
     Route: 048
     Dates: start: 20180213, end: 20180529
  11. ONDANSETRON [Concomitant]
     Active Substance: ONDANSETRON
     Dosage: SINGLE DOSE THEN EVERY 3 WEEKS
     Route: 048
     Dates: start: 20180213, end: 20180529
  12. CODEINE PHOSPHATE [Concomitant]
     Active Substance: CODEINE PHOSPHATE
     Route: 048
     Dates: start: 20180809, end: 20180905
  13. MORPHINE SULFATE [Concomitant]
     Active Substance: MORPHINE SULFATE
     Route: 048
     Dates: start: 20180809, end: 20180905
  14. LYMECYCLINE [Concomitant]
     Active Substance: LYMECYCLINE
     Route: 048
  15. CHOLECALCIFEROL [Concomitant]
     Active Substance: CHOLECALCIFEROL
     Route: 048

REACTIONS (1)
  - Lower respiratory tract infection [Recovered/Resolved]

NARRATIVE: CASE EVENT DATE: 20221224
